FAERS Safety Report 8003595-4 (Version None)
Quarter: 2011Q4

REPORT INFORMATION
  Report Type: 
  Country: None (occurrence: None)
  Receive Date: 20111222
  Receipt Date: 20111213
  Transmission Date: 20120403
  Serious: Yes (Hospitalization)
  Sender: FDA-Public Use
  Company Number: BG-ASTRAZENECA-2011SE75990

PATIENT
  Age: 76 Year
  Sex: Female

DRUGS (8)
  1. ISODINIT RETARD [Concomitant]
     Route: 048
  2. PRESTARIUM [Concomitant]
     Route: 048
  3. CRESTOR [Concomitant]
     Route: 048
  4. ASPIRIN [Concomitant]
     Route: 048
  5. BRILIQUE [Suspect]
     Indication: ACUTE CORONARY SYNDROME
     Route: 048
     Dates: start: 20111208
  6. KVAMATEL [Concomitant]
     Route: 048
  7. BRILIQUE [Suspect]
     Indication: ANGINA UNSTABLE
     Route: 048
     Dates: start: 20111208
  8. METOPROLOL SUCCINATE [Concomitant]
     Route: 048

REACTIONS (1)
  - ISCHAEMIC STROKE [None]
